FAERS Safety Report 18300781 (Version 3)
Quarter: 2020Q4

REPORT INFORMATION
  Report Type: Spontaneous
  Country: US (occurrence: US)
  Receive Date: 20200923
  Receipt Date: 20201218
  Transmission Date: 20210113
  Serious: Yes (Other)
  Sender: FDA-Public Use
  Company Number: US-AUROBINDO-AUR-APL-2020-049314

PATIENT
  Sex: Female
  Weight: 66.6 kg

DRUGS (1)
  1. HYDROCODONE BITARTRATE AND ACETAMINOPHEN [Suspect]
     Active Substance: ACETAMINOPHEN\HYDROCODONE BITARTRATE
     Indication: ARTHRITIS
     Dosage: 2 DOSAGE FORM, ONCE A DAY
     Route: 065

REACTIONS (8)
  - Somnolence [Unknown]
  - Drug ineffective [Unknown]
  - Drug dependence [Unknown]
  - Tremor [Unknown]
  - Loss of personal independence in daily activities [Unknown]
  - Mood swings [Unknown]
  - Mental impairment [Unknown]
  - Prescription drug used without a prescription [Unknown]
